FAERS Safety Report 16236434 (Version 1)
Quarter: 2019Q2

REPORT INFORMATION
  Report Type: Spontaneous
  Country: US (occurrence: US)
  Receive Date: 20190425
  Receipt Date: 20190425
  Transmission Date: 20190711
  Serious: No
  Sender: FDA-Public Use
  Company Number: US-ASTRAZENECA-2019SE52022

PATIENT
  Age: 21428 Day
  Sex: Female
  Weight: 74.4 kg

DRUGS (3)
  1. SYMBICORT [Suspect]
     Active Substance: BUDESONIDE\FORMOTEROL FUMARATE DIHYDRATE
     Indication: EMPHYSEMA
     Dosage: 2 PUFFS ONCE DAILY
     Route: 055
  2. TUMERIC [Concomitant]
     Active Substance: HERBALS\TURMERIC
  3. SYMBICORT [Suspect]
     Active Substance: BUDESONIDE\FORMOTEROL FUMARATE DIHYDRATE
     Indication: CHRONIC OBSTRUCTIVE PULMONARY DISEASE
     Dosage: 2 PUFFS ONCE DAILY
     Route: 055

REACTIONS (19)
  - Intentional product misuse [Unknown]
  - Memory impairment [Unknown]
  - Uterine pain [Unknown]
  - Dyspnoea [Unknown]
  - Neuralgia [Unknown]
  - Haemorrhoids [Unknown]
  - Eye pruritus [Unknown]
  - Visual impairment [Unknown]
  - Vision blurred [Unknown]
  - Blood cholesterol increased [Unknown]
  - Pain [Unknown]
  - Cough [Unknown]
  - Off label use [Not Recovered/Not Resolved]
  - Dry eye [Unknown]
  - Tendon pain [Unknown]
  - Chronic obstructive pulmonary disease [Unknown]
  - Dizziness [Unknown]
  - Muscle spasms [Unknown]
  - Stress [Unknown]

NARRATIVE: CASE EVENT DATE: 201903
